FAERS Safety Report 17593716 (Version 2)
Quarter: 2020Q2

REPORT INFORMATION
  Report Type: Report from Study
  Country: None (occurrence: DE)
  Receive Date: 20200328
  Receipt Date: 20200410
  Transmission Date: 20200713
  Serious: Yes (Death)
  Sender: FDA-Public Use
  Company Number: DE-ABBVIE-20K-062-3340348-00

PATIENT
  Age: 77 Year
  Sex: Male

DRUGS (2)
  1. DUODOPA [Suspect]
     Active Substance: CARBIDOPA\LEVODOPA
     Indication: PARKINSON^S DISEASE
     Dosage: CRD 3 ML/H
     Route: 050
     Dates: start: 20200302, end: 202003
  2. DUODOPA [Suspect]
     Active Substance: CARBIDOPA\LEVODOPA
     Indication: DYSPHAGIA
     Dosage: MD 3 ML; CRD 3.5 ML/H; CRN 3.5 ML/H; ED 1.5 ML
     Route: 050
     Dates: start: 20200303

REACTIONS (1)
  - Death [Fatal]

NARRATIVE: CASE EVENT DATE: 20200319
